FAERS Safety Report 16944760 (Version 4)
Quarter: 2023Q2

REPORT INFORMATION
  Report Type: Spontaneous
  Country: US (occurrence: US)
  Receive Date: 20191022
  Receipt Date: 20230510
  Transmission Date: 20230722
  Serious: Yes (Other)
  Sender: FDA-Public Use
  Company Number: US-ENDO PHARMACEUTICALS INC-2019-108798

PATIENT
  Age: 53 Year
  Sex: Male
  Weight: 90.703 kg

DRUGS (10)
  1. EDEX [Suspect]
     Active Substance: ALPROSTADIL
     Indication: Erectile dysfunction
     Dosage: 40 ?G, UNKNOWN
     Route: 065
     Dates: start: 2007
  2. EDEX [Suspect]
     Active Substance: ALPROSTADIL
     Indication: Erectile dysfunction
     Dosage: 40 ?G, UNKNOWN
     Route: 065
     Dates: start: 2007
  3. EDEX [Suspect]
     Active Substance: ALPROSTADIL
     Indication: Erectile dysfunction
     Dosage: 40 ?G, UNKNOWN
     Route: 065
     Dates: start: 2007
  4. EDEX [Suspect]
     Active Substance: ALPROSTADIL
     Indication: Erectile dysfunction
     Dosage: 40 ?G, UNKNOWN
     Route: 065
     Dates: start: 2007
  5. EDEX [Suspect]
     Active Substance: ALPROSTADIL
     Indication: Varicocele
     Dosage: UNK UNKNOWN, UNKNOWN
     Route: 065
     Dates: start: 2008, end: 2018
  6. EDEX [Suspect]
     Active Substance: ALPROSTADIL
     Indication: Varicocele
     Dosage: UNK UNKNOWN, UNKNOWN
     Route: 065
     Dates: start: 2008, end: 2018
  7. EDEX [Suspect]
     Active Substance: ALPROSTADIL
     Indication: Varicocele
     Dosage: UNK UNKNOWN, UNKNOWN
     Route: 065
     Dates: start: 2008, end: 2018
  8. EDEX [Suspect]
     Active Substance: ALPROSTADIL
     Indication: Varicocele
     Dosage: UNK UNKNOWN, UNKNOWN
     Route: 065
     Dates: start: 2008, end: 2018
  9. PRILOSEC [Concomitant]
     Active Substance: OMEPRAZOLE MAGNESIUM
     Indication: Gastrooesophageal reflux disease
     Dosage: UNK UNKNOWN, UNK
     Route: 065
     Dates: start: 2016
  10. FENOFIBRATE [Concomitant]
     Active Substance: FENOFIBRATE
     Indication: Blood cholesterol increased
     Dosage: UNK UNKNOWN, UNKNOWN
     Route: 065
     Dates: start: 2017

REACTIONS (2)
  - Prostate cancer stage IV [Unknown]
  - Product quality issue [Unknown]

NARRATIVE: CASE EVENT DATE: 20180613
